FAERS Safety Report 9278369 (Version 1)
Quarter: 2013Q2

REPORT INFORMATION
  Report Type: Spontaneous
  Country: CA (occurrence: CA)
  Receive Date: 20130508
  Receipt Date: 20130513
  Transmission Date: 20140414
  Serious: Yes (Other)
  Sender: FDA-Public Use
  Company Number: CA-PFIZER INC-2013139742

PATIENT
  Age: 74 Year
  Sex: Female

DRUGS (8)
  1. MORPHINE SULFATE [Suspect]
     Indication: PAIN
     Dosage: 30 MG, Q4H AS NEEDED
     Route: 065
  2. MIRTAZAPINE [Suspect]
     Indication: MAJOR DEPRESSION
     Dosage: 30 MG, DAILY
  3. FUROSEMIDE [Suspect]
     Indication: OEDEMA PERIPHERAL
     Dosage: 40 MG, DAILY
  4. DIMENHYDRINATE [Suspect]
     Indication: VOMITING
     Dosage: 50 MG, Q4H PRN
  5. DOCUSATE SODIUM [Concomitant]
     Indication: CONSTIPATION
     Dosage: 200 MG, DAILY
  6. LACTULOSE [Concomitant]
     Indication: CONSTIPATION
     Dosage: 30 ML, DAILY
  7. BISACODYL [Concomitant]
     Indication: CONSTIPATION
     Dosage: 10 MG, AS NEEDED
  8. SODIUM PHOSPHATE [Concomitant]
     Indication: CONSTIPATION
     Dosage: 130 ML, DAILY

REACTIONS (2)
  - Delirium [Unknown]
  - Intestinal obstruction [Unknown]
